FAERS Safety Report 4990683-X (Version None)
Quarter: 2006Q2

REPORT INFORMATION
  Report Type: 
  Country: None (occurrence: None)
  Receive Date: 20060427
  Receipt Date: 20060418
  Transmission Date: 20061013
  Serious: Yes (Other)
  Sender: FDA-Public Use
  Company Number: HQWYE868519APR06

PATIENT
  Age: 65 Year
  Sex: Female

DRUGS (1)
  1. CORDARONE [Suspect]
     Indication: VENTRICULAR TACHYCARDIA
     Dosage: 2 BOLUSES OF 150 MG AMIODARONE SLOW IV
     Route: 042

REACTIONS (4)
  - BLOOD PRESSURE IMMEASURABLE [None]
  - DIZZINESS [None]
  - DRUG INEFFECTIVE [None]
  - HEART RATE INCREASED [None]
